FAERS Safety Report 16183864 (Version 1)
Quarter: 2019Q2

REPORT INFORMATION
  Report Type: Spontaneous
  Country: US (occurrence: US)
  Receive Date: 20190410
  Receipt Date: 20190410
  Transmission Date: 20190711
  Serious: No
  Sender: FDA-Public Use
  Company Number: None

PATIENT
  Age: 60 Year
  Sex: Male

DRUGS (3)
  1. HYDROCORTISONE 100 MG IVP [Concomitant]
     Dates: start: 20190327, end: 20190327
  2. OXALIPLATIN. [Suspect]
     Active Substance: OXALIPLATIN
     Indication: RECTAL CANCER
     Dosage: ?          OTHER FREQUENCY:ONE TIME INFUSION;?
     Route: 046
     Dates: start: 20190327, end: 20190327
  3. BENADRYL IVP [Concomitant]
     Dates: start: 20190327, end: 20190328

REACTIONS (4)
  - Generalised erythema [None]
  - Malaise [None]
  - Infusion related reaction [None]
  - Pruritus generalised [None]

NARRATIVE: CASE EVENT DATE: 20190327
